FAERS Safety Report 18545918 (Version 1)
Quarter: 2020Q4

REPORT INFORMATION
  Report Type: Report from Study
  Country: IN (occurrence: IN)
  Receive Date: 20201125
  Receipt Date: 20201125
  Transmission Date: 20210114
  Serious: Yes (Other)
  Sender: FDA-Public Use
  Company Number: IN-MYLANLABS-2020M1097361

PATIENT
  Age: 15 Year
  Sex: Male

DRUGS (6)
  1. PREDNISOLONE. [Suspect]
     Active Substance: PREDNISOLONE
     Indication: B PRECURSOR TYPE ACUTE LEUKAEMIA
     Dosage: 60 MILLIGRAM/SQ. METER, QD, FOR DAYS 1-28 DURING INDUCTION PHASE A
     Route: 048
  2. VINCRISTINE [Suspect]
     Active Substance: VINCRISTINE
     Indication: B PRECURSOR TYPE ACUTE LEUKAEMIA
     Dosage: 1.5 MILLIGRAM/SQ. METER, QW, ONCE WEEKLY FOR 4 WEEKS DURING INDUCTION PHASE A
     Route: 042
  3. METHOTREXATE. [Suspect]
     Active Substance: METHOTREXATE
     Indication: B PRECURSOR TYPE ACUTE LEUKAEMIA
     Dosage: 12 MILLIGRAM, 4 DOSES OF 12MG DURING INDUCTION PHASE A
     Route: 037
  4. L ASPARAGINASE [Suspect]
     Active Substance: ASPARAGINASE
     Indication: B PRECURSOR TYPE ACUTE LEUKAEMIA
     Dosage: 5000 U/M 2 TWICE WEEKLY (TOTAL 8 DOSES) DURING INDUCTION PHASE A, 0.5 WEEK
     Route: 042
  5. DAUNORUBICIN [Suspect]
     Active Substance: DAUNORUBICIN
     Indication: B PRECURSOR TYPE ACUTE LEUKAEMIA
     Dosage: 30 MILLIGRAM/SQ. METER, QW, ONCE WEEKLY FOR 4 WEEKS DURING INDUCTION PHASE A
     Route: 042
  6. ENOXAPARIN [Suspect]
     Active Substance: ENOXAPARIN
     Indication: CEREBRAL VENOUS SINUS THROMBOSIS
     Dosage: 1 MILLIGRAM/KILOGRAM, BID
     Route: 065

REACTIONS (2)
  - Heparin-induced thrombocytopenia [Unknown]
  - Cerebral venous sinus thrombosis [Recovered/Resolved]
